FAERS Safety Report 24328166 (Version 1)
Quarter: 2024Q3

REPORT INFORMATION
  Report Type: Spontaneous
  Country: US (occurrence: None)
  Receive Date: 20240917
  Receipt Date: 20240917
  Transmission Date: 20241016
  Serious: Yes (Other)
  Sender: Public
  Company Number: None

PATIENT
  Age: 47 Year
  Sex: Female
  Weight: 63 kg

DRUGS (10)
  1. CIPROFLOXACIN [Suspect]
     Active Substance: CIPROFLOXACIN
     Indication: Escherichia infection
     Dates: start: 20240820, end: 20240824
  2. AZITHROMYCIN [Suspect]
     Active Substance: AZITHROMYCIN
  3. Seed probiotics [Concomitant]
  4. UNSPECIFIED INGREDIENT [Concomitant]
     Active Substance: UNSPECIFIED INGREDIENT
  5. LEVONORGESTREL [Concomitant]
     Active Substance: LEVONORGESTREL
  6. MESALAMINE [Concomitant]
     Active Substance: MESALAMINE
  7. Pure encapsulation GI fortify powder [Concomitant]
  8. VITAMIN D [Concomitant]
     Active Substance: VITAMIN D NOS
  9. BIOTIN [Concomitant]
     Active Substance: BIOTIN
  10. MAGNESIUM [Concomitant]
     Active Substance: MAGNESIUM

REACTIONS (3)
  - Pancreatitis [None]
  - Adverse drug reaction [None]
  - Gastrointestinal oedema [None]
